FAERS Safety Report 5413262-9 (Version None)
Quarter: 2007Q3

REPORT INFORMATION
  Report Type: 
  Country: None (occurrence: None)
  Receive Date: 20070717
  Receipt Date: 20060601
  Transmission Date: 20080115
  Serious: Yes (Other)
  Sender: FDA-Public Use
  Company Number: HQWYE819002JUN06

PATIENT
  Age: 78 Year
  Sex: Female
  Weight: 93.07 kg

DRUGS (5)
  1. ADVIL LIQUI-GELS [Suspect]
     Indication: PAIN
     Dosage: 2 TABLETS DAILY - TWICE DAILY AS NEEDED, ORAL
     Route: 048
     Dates: end: 20060531
  2. ALLEGRA [Suspect]
     Indication: HYPERSENSITIVITY
     Dosage: 1 TABLET 1X PER 1 DAY, ORAL
     Route: 048
     Dates: end: 20060101
  3. LESCOL [Suspect]
     Dosage: 1 TABLET 1X PER 1 DAY, ORAL  (THERAPY DATES: SEVERAL YEARS AGO CONTINUES)
     Route: 048
  4. LOTREL [Suspect]
     Dosage: 1 TABLET 1X PER 1 DAY, ORAL
     Route: 048
  5. ACETAMINOPHEN [Suspect]
     Indication: PAIN
     Dosage: ORAL
     Route: 048
     Dates: start: 20060101

REACTIONS (3)
  - ANGIOEDEMA [None]
  - COUGH [None]
  - WEIGHT FLUCTUATION [None]
